FAERS Safety Report 18525532 (Version 1)
Quarter: 2020Q4

REPORT INFORMATION
  Report Type: Spontaneous
  Country: US (occurrence: US)
  Receive Date: 20201119
  Receipt Date: 20201119
  Transmission Date: 20210114
  Serious: No
  Sender: FDA-Public Use
  Company Number: US-ELI_LILLY_AND_COMPANY-US202011007761

PATIENT
  Age: 9 Year
  Sex: Male
  Weight: 24.2 kg

DRUGS (4)
  1. MIRALAX [Concomitant]
     Active Substance: POLYETHYLENE GLYCOL 3350
     Indication: ABNORMAL FAECES
     Dosage: UNK, DAILY
     Route: 048
  2. HUMATROPE [Suspect]
     Active Substance: SOMATROPIN
     Indication: GROWTH HORMONE DEFICIENCY
     Dosage: 0.19 MG/KG, WEEKLY (1/W)
     Route: 058
     Dates: start: 20160622
  3. ACETAMINOPHEN. [Concomitant]
     Active Substance: ACETAMINOPHEN
     Indication: PRODUCT USED FOR UNKNOWN INDICATION
     Dosage: UNK, UNKNOWN
     Route: 048
  4. HUMATROPE [Suspect]
     Active Substance: SOMATROPIN
     Dosage: 0.27 MG/KG, WEEKLY (1/W)
     Route: 058

REACTIONS (3)
  - Decreased appetite [Unknown]
  - Arthralgia [Recovered/Resolved]
  - Nasopharyngitis [Unknown]

NARRATIVE: CASE EVENT DATE: 201608
